FAERS Safety Report 7228754 (Version 8)
Quarter: 2012Q4

REPORT INFORMATION
  Report Type: 
  Country: US (occurrence: US)
  Receive Date: 20091223
  Receipt Date: 20121015
  Transmission Date: 20130627
  Serious: Yes (Hospitalization)
  Sender: FDA-Public Use
  Company Number: US-BAYER-200943276NA

PATIENT
  Age: 19 Year
  Sex: Female
  Weight: 76.36 kg

DRUGS (5)
  1. YASMIN [Suspect]
     Route: 048
     Dates: start: 2005, end: 2006
  2. POTASSIUM CHLORIDE [Concomitant]
     Dosage: 20 mEq, QD
     Route: 048
     Dates: start: 20060326
  3. ZOFRAN [Concomitant]
     Dosage: 4 mg, UNK
     Route: 042
     Dates: start: 20060326
  4. ANTIVERT [MECLOZINE HYDROCHLORIDE] [Concomitant]
     Dosage: 25 mg, BID
     Route: 048
     Dates: start: 20060326
  5. FOLIC ACID [Concomitant]
     Dosage: UNK
     Dates: start: 20060327

REACTIONS (5)
  - Cerebrovascular accident [None]
  - Ischaemic stroke [None]
  - Cerebrovascular accident [None]
  - Thrombosis [None]
  - Hypercoagulation [None]
